FAERS Safety Report 12522424 (Version 1)
Quarter: 2016Q3

REPORT INFORMATION
  Report Type: Spontaneous
  Country: JP (occurrence: JP)
  Receive Date: 20160701
  Receipt Date: 20160701
  Transmission Date: 20161109
  Serious: Yes (Death)
  Sender: FDA-Public Use
  Company Number: JP-MYLANLABS-2016M1027269

PATIENT

DRUGS (1)
  1. PREDNISOLONE. [Suspect]
     Active Substance: PREDNISOLONE
     Indication: INTERSTITIAL LUNG DISEASE
     Dosage: 22.5 MG/DAY
     Route: 048

REACTIONS (4)
  - Metastases to liver [Fatal]
  - Metastases to lung [Fatal]
  - Metastases to lymph nodes [Fatal]
  - Squamous cell carcinoma of the vagina [Fatal]
